FAERS Safety Report 21501977 (Version 1)
Quarter: 2022Q4

REPORT INFORMATION
  Report Type: Spontaneous
  Country: US (occurrence: None)
  Receive Date: 20221024
  Receipt Date: 20221024
  Transmission Date: 20230113
  Serious: No
  Sender: FDA-Public Use
  Company Number: None

PATIENT

DRUGS (1)
  1. GLATIRAMER ACETATE [Suspect]
     Active Substance: GLATIRAMER ACETATE

REACTIONS (5)
  - Dehydration [None]
  - Vertigo [None]
  - Dyspepsia [None]
  - Malaise [None]
  - Therapy interrupted [None]
